FAERS Safety Report 25008564 (Version 1)
Quarter: 2025Q1

REPORT INFORMATION
  Report Type: Spontaneous
  Country: JP (occurrence: JP)
  Receive Date: 20250225
  Receipt Date: 20250225
  Transmission Date: 20250408
  Serious: Yes (Disabling)
  Sender: REGENERON
  Company Number: JP-BAYER-2023A183561

PATIENT
  Age: 74 Year
  Sex: Female

DRUGS (1)
  1. EYLEA [Suspect]
     Active Substance: AFLIBERCEPT
     Indication: Product used for unknown indication
     Dates: start: 202109, end: 202111

REACTIONS (3)
  - Disability [Unknown]
  - Cerebral disorder [Unknown]
  - Cerebral infarction [Unknown]
